FAERS Safety Report 4558701-0 (Version None)
Quarter: 2005Q1

REPORT INFORMATION
  Report Type: 
  Country: None (occurrence: None)
  Receive Date: 20050119
  Receipt Date: 20050107
  Transmission Date: 20050727
  Serious: Yes (Hospitalization)
  Sender: FDA-Public Use
  Company Number: 001-0981-M0005345

PATIENT
  Age: 75 Year
  Sex: Male
  Weight: 65.7716 kg

DRUGS (8)
  1. ATORVASTATIN (ATORVASTATIN) [Suspect]
     Indication: CORONARY ARTERY DISEASE
     Dosage: SEE IMAGE
     Route: 048
     Dates: start: 19981119, end: 19990120
  2. ATORVASTATIN (ATORVASTATIN) [Suspect]
     Indication: CORONARY ARTERY DISEASE
     Dosage: SEE IMAGE
     Route: 048
     Dates: start: 19990121
  3. AMLODIPINE [Concomitant]
  4. DOXAZOSIN MESYLATE [Concomitant]
  5. METFORMIN HCL [Concomitant]
  6. FINASTERIDE [Concomitant]
  7. ACYCLOVIR [Concomitant]
  8. VICODIN [Concomitant]

REACTIONS (5)
  - DISEASE RECURRENCE [None]
  - DIVERTICULITIS [None]
  - HERPES ZOSTER [None]
  - POSTOPERATIVE ILEUS [None]
  - WEIGHT DECREASED [None]
